FAERS Safety Report 6415778-5 (Version None)
Quarter: 2009Q4

REPORT INFORMATION
  Report Type: 
  Country: None (occurrence: None)
  Receive Date: 20091022
  Receipt Date: 20091009
  Transmission Date: 20100525
  Serious: Yes (Life-Threatening, Hospitalization)
  Sender: FDA-Public Use
  Company Number: 002098

PATIENT
  Sex: Female
  Weight: 49.9 kg

DRUGS (11)
  1. ISOSORBIDE MONONITRATE [Suspect]
     Indication: HYPERTENSION
     Dosage: 60 MG BID ORAL
     Route: 048
     Dates: start: 19980101
  2. DILTIAZEM [Concomitant]
  3. METOPROLOL [Concomitant]
  4. PROTONIX [Concomitant]
  5. MIRAPEX [Concomitant]
  6. ZOCOR [Concomitant]
  7. LISINOPRIL [Concomitant]
  8. ZOLOFT [Concomitant]
  9. PILOCARPINE HYDROCHLORIDE [Concomitant]
  10. AZOPT [Concomitant]
  11. TRAVATAN [Concomitant]

REACTIONS (5)
  - CARDIAC ENZYMES INCREASED [None]
  - CHEST PAIN [None]
  - HYPOTENSION [None]
  - MEDICATION RESIDUE [None]
  - MYOCARDIAL INFARCTION [None]
